FAERS Safety Report 10856060 (Version 1)
Quarter: 2015Q1

REPORT INFORMATION
  Report Type: Spontaneous
  Country: FR (occurrence: FR)
  Receive Date: 20150223
  Receipt Date: 20150223
  Transmission Date: 20150721
  Serious: Yes (Death, Hospitalization)
  Sender: FDA-Public Use
  Company Number: FR-TEVA-541542ISR

PATIENT
  Age: 84 Year
  Sex: Female

DRUGS (7)
  1. NAPROXENE SODIQUE TEVA 550MG [Suspect]
     Active Substance: NAPROXEN SODIUM
     Indication: BACK PAIN
     Dosage: 1 DOSAGE FORMS DAILY;
     Route: 048
     Dates: start: 20140123, end: 20140126
  2. TRAMADOL SANDOZ 50MG [Concomitant]
     Dosage: 50 MILLIGRAM DAILY; UP TO 4 DF DAILY
     Route: 048
     Dates: start: 20140123, end: 20140126
  3. OMEPRAZOLE 20MG [Concomitant]
     Active Substance: OMEPRAZOLE
     Dosage: 20 MILLIGRAM DAILY;
     Route: 048
     Dates: start: 20140123, end: 20140126
  4. FUROSEMIDE 20 MG [Suspect]
     Active Substance: FUROSEMIDE
     Route: 048
     Dates: start: 201007, end: 20140126
  5. SPIRONOLACTONE 50 MG [Suspect]
     Active Substance: SPIRONOLACTONE
     Route: 048
     Dates: start: 20140123, end: 20140126
  6. PERINDOPRIL 20 MG [Suspect]
     Active Substance: PERINDOPRIL
     Route: 048
     Dates: start: 2011, end: 20140126
  7. PARACETAMOL [Concomitant]
     Active Substance: ACETAMINOPHEN
     Dosage: UP TO 8 DF DAILY
     Route: 048
     Dates: start: 20140123

REACTIONS (10)
  - Tremor [None]
  - Hepatobiliary disease [None]
  - Asterixis [None]
  - Disorientation [None]
  - Pleural effusion [None]
  - Death [Fatal]
  - Acute kidney injury [Recovered/Resolved]
  - Jaundice [None]
  - Generalised oedema [None]
  - Confusional state [Recovered/Resolved]

NARRATIVE: CASE EVENT DATE: 20140126
